FAERS Safety Report 16608858 (Version 3)
Quarter: 2019Q3

REPORT INFORMATION
  Report Type: Spontaneous
  Country: US (occurrence: US)
  Receive Date: 20190722
  Receipt Date: 20190927
  Transmission Date: 20191004
  Serious: No
  Sender: FDA-Public Use
  Company Number: US-PFIZER INC-2019307217

PATIENT
  Age: 49 Year
  Sex: Female
  Weight: 67.12 kg

DRUGS (2)
  1. XELJANZ XR [Suspect]
     Active Substance: TOFACITINIB CITRATE
     Dosage: 11 MG, UNK (6 MOS AGO)
  2. XELJANZ XR [Suspect]
     Active Substance: TOFACITINIB CITRATE
     Indication: RHEUMATOID ARTHRITIS
     Dosage: 11 MG, 1X/DAY
     Route: 048

REACTIONS (13)
  - Burning sensation [Not Recovered/Not Resolved]
  - Musculoskeletal stiffness [Recovered/Resolved]
  - Rash [Recovered/Resolved]
  - Musculoskeletal pain [Unknown]
  - Axillary pain [Unknown]
  - Pain [Not Recovered/Not Resolved]
  - Back pain [Recovered/Resolved]
  - Breast pain [Unknown]
  - Rash pruritic [Unknown]
  - Herpes zoster [Recovered/Resolved]
  - Headache [Recovered/Resolved]
  - Skin lesion [Recovered/Resolved]
  - Pyrexia [Recovered/Resolved]

NARRATIVE: CASE EVENT DATE: 20190702
